FAERS Safety Report 16274748 (Version 1)
Quarter: 2019Q2

REPORT INFORMATION
  Report Type: Spontaneous
  Country: US (occurrence: US)
  Receive Date: 20190503
  Receipt Date: 20190503
  Transmission Date: 20190711
  Serious: No
  Sender: FDA-Public Use
  Company Number: None

PATIENT
  Age: 53 Year
  Sex: Female
  Weight: 78.75 kg

DRUGS (5)
  1. ZANTAC TABLETS [Concomitant]
  2. COENZYME Q10 [Concomitant]
     Active Substance: UBIDECARENONE
  3. CARDITONE [Concomitant]
  4. REFRESH OPTIVE ADVANCED [Suspect]
     Active Substance: CARBOXYMETHYLCELLULOSE SODIUM\GLYCERIN\POLYSORBATE 80
     Indication: DRY EYE
     Dosage: ?          QUANTITY:30 0.4 ML SINGLE USE;?
     Route: 047
  5. GINKGO BILOBA [Concomitant]
     Active Substance: GINKGO

REACTIONS (5)
  - Vision blurred [None]
  - Liquid product physical issue [None]
  - Eye pain [None]
  - Ocular hyperaemia [None]
  - Product quality issue [None]
